FAERS Safety Report 9404489 (Version 1)
Quarter: 2013Q3

REPORT INFORMATION
  Report Type: Spontaneous
  Country: US (occurrence: US)
  Receive Date: 20130717
  Receipt Date: 20130717
  Transmission Date: 20140515
  Serious: No
  Sender: FDA-Public Use
  Company Number: US-PFIZER INC-2013206534

PATIENT
  Age: 69 Year
  Sex: Female
  Weight: 79.82 kg

DRUGS (9)
  1. NEURONTIN [Suspect]
     Indication: SPINAL FUSION SURGERY
     Dosage: 300 MG, 2X/DAY
     Dates: start: 20130514
  2. NEURONTIN [Suspect]
     Indication: BACK PAIN
     Dosage: 300 MG, 1X/DAY (ONCE AT NIGHT)
     Dates: start: 2013, end: 20130709
  3. LYRICA [Suspect]
     Indication: SPINAL FUSION SURGERY
     Dosage: 75 MG, 2X/DAY
     Dates: start: 20130711
  4. LYRICA [Suspect]
     Indication: BACK PAIN
  5. MOBIC [Suspect]
     Indication: SPINAL FUSION SURGERY
     Dosage: 15 MG, 1X/DAY
     Dates: start: 20130514, end: 20130709
  6. MOBIC [Suspect]
     Indication: BACK PAIN
  7. LEVOTHYROXINE [Concomitant]
     Indication: HYPOTHYROIDISM
     Dosage: 88 UG, 1X/DAY
  8. SIMVASTATIN [Concomitant]
     Dosage: 20 MG, 1X/DAY
  9. PAROXETINE [Concomitant]
     Dosage: 20 MG, 1X/DAY

REACTIONS (7)
  - Intentional drug misuse [Unknown]
  - Drug ineffective [Unknown]
  - Dizziness [Unknown]
  - Malaise [Unknown]
  - Headache [Unknown]
  - Nausea [Unknown]
  - Feeling abnormal [Unknown]
